FAERS Safety Report 5535519-3 (Version None)
Quarter: 2007Q4

REPORT INFORMATION
  Report Type: 
  Country: None (occurrence: None)
  Receive Date: 20071120
  Receipt Date: 20070813
  Transmission Date: 20080405
  Serious: No
  Sender: FDA-Public Use
  Company Number: WAES 0708USA02472

PATIENT
  Age: 85 Year
  Sex: Female

DRUGS (8)
  1. JANUVIA [Suspect]
     Indication: TYPE 2 DIABETES MELLITUS
     Dosage: PO
     Route: 048
     Dates: start: 20070719
  2. EFFEXOR [Concomitant]
  3. LIPITOR [Concomitant]
  4. MOBIC [Concomitant]
  5. XANAX [Concomitant]
  6. ASPIRIN [Concomitant]
  7. CALCIUM (UNSPECIFIED) [Concomitant]
  8. VITAMINS (UNSPECIFIED) [Concomitant]

REACTIONS (1)
  - DRUG INEFFECTIVE [None]
